FAERS Safety Report 6647539-6 (Version None)
Quarter: 2010Q1

REPORT INFORMATION
  Report Type: 
  Country: None (occurrence: None)
  Receive Date: 20100323
  Receipt Date: 20100323
  Transmission Date: 20100710
  Serious: Yes (Hospitalization)
  Sender: FDA-Public Use
  Company Number: None

PATIENT
  Age: 77 Year
  Sex: Female
  Weight: 83 kg

DRUGS (1)
  1. GOLD SODIUM THIOMALATE 50MG/ML [Suspect]
     Indication: PEMPHIGOID
     Dosage: 50MG MONTHLY IM
     Route: 030
     Dates: start: 20091109, end: 20091109

REACTIONS (6)
  - DIARRHOEA [None]
  - HYPERHIDROSIS [None]
  - HYPOTENSION [None]
  - LOSS OF CONSCIOUSNESS [None]
  - OCULAR HYPERAEMIA [None]
  - SYNCOPE [None]
